FAERS Safety Report 4911854-4 (Version None)
Quarter: 2006Q1

REPORT INFORMATION
  Report Type: 
  Country: None (occurrence: None)
  Receive Date: 20060215
  Receipt Date: 20060202
  Transmission Date: 20060701
  Serious: Yes (Other)
  Sender: FDA-Public Use
  Company Number: PHEH2006US01675

PATIENT
  Age: 52 Year
  Sex: Male

DRUGS (1)
  1. TEGRETOL-XR [Suspect]
     Indication: CONVULSION
     Dosage: 300 MG, BID
     Route: 048
     Dates: start: 19960101

REACTIONS (7)
  - BLOOD IMMUNOGLOBULIN A DECREASED [None]
  - BLOOD IMMUNOGLOBULIN G DECREASED [None]
  - BLOOD IMMUNOGLOBULIN M DECREASED [None]
  - HAEMOGLOBIN DECREASED [None]
  - HYPOGAMMAGLOBULINAEMIA [None]
  - NASOPHARYNGITIS [None]
  - PLATELET COUNT DECREASED [None]
